FAERS Safety Report 8305614-4 (Version None)
Quarter: 2012Q2

REPORT INFORMATION
  Report Type: 
  Country: None (occurrence: None)
  Receive Date: 20120418
  Receipt Date: 20120410
  Transmission Date: 20120825
  Serious: Yes (Hospitalization)
  Sender: FDA-Public Use
  Company Number: 2012MA004814

PATIENT
  Age: 22 Year
  Sex: Male

DRUGS (1)
  1. DOXYCYCLINE HYCLATE [Suspect]
     Indication: ACNE
     Dosage: 100 MG;PO
     Route: 048

REACTIONS (3)
  - FOREIGN BODY [None]
  - OESOPHAGEAL ULCER [None]
  - BURN OESOPHAGEAL [None]
